FAERS Safety Report 16261330 (Version 1)
Quarter: 2019Q2

REPORT INFORMATION
  Report Type: Spontaneous
  Country: US (occurrence: US)
  Receive Date: 20190501
  Receipt Date: 20190501
  Transmission Date: 20190711
  Serious: Yes (Disabling, Other)
  Sender: FDA-Public Use
  Company Number: US-MALLINCKRODT-T201903242

PATIENT
  Sex: Male

DRUGS (1)
  1. OXYCODONE [Suspect]
     Active Substance: OXYCODONE
     Indication: PAIN
     Dosage: 30 MG, 1 TABLET 5 TIMES A DAY
     Route: 065

REACTIONS (11)
  - Knee arthroplasty [Unknown]
  - Sternal fracture [Unknown]
  - Head injury [Unknown]
  - Blindness [Unknown]
  - Arthropathy [Unknown]
  - Accident [Unknown]
  - Spinal operation [Unknown]
  - Drug ineffective [Unknown]
  - Ankle fracture [Unknown]
  - Chest injury [Unknown]
  - Back disorder [Unknown]
